FAERS Safety Report 14187699 (Version 2)
Quarter: 2020Q3

REPORT INFORMATION
  Report Type: Report from Study
  Country: RU (occurrence: RU)
  Receive Date: 20171114
  Receipt Date: 20180219
  Transmission Date: 20201105
  Serious: Yes (Hospitalization)
  Sender: FDA-Public Use
  Company Number: RU-ASTRAZENECA-2017SF15119

PATIENT
  Age: 28035 Day
  Sex: Male

DRUGS (25)
  1. DURVALUMAB. [Suspect]
     Active Substance: DURVALUMAB
     Indication: BLADDER TRANSITIONAL CELL CARCINOMA
     Dosage: 1500 MG EVERY FOUR WEEKS
     Route: 042
     Dates: start: 20170309, end: 20170309
  2. DURVALUMAB. [Suspect]
     Active Substance: DURVALUMAB
     Indication: BLADDER TRANSITIONAL CELL CARCINOMA
     Dosage: 1500 MG EVERY FOUR WEEKS
     Route: 042
     Dates: start: 20161117, end: 20161117
  3. DURVALUMAB. [Suspect]
     Active Substance: DURVALUMAB
     Indication: BLADDER TRANSITIONAL CELL CARCINOMA
     Dosage: 1500 MG EVERY FOUR WEEKS
     Route: 042
     Dates: start: 20170601, end: 20170601
  4. DURVALUMAB. [Suspect]
     Active Substance: DURVALUMAB
     Indication: BLADDER TRANSITIONAL CELL CARCINOMA
     Dosage: 1500 MG EVERY FOUR WEEKS
     Route: 042
     Dates: start: 20171116, end: 20171116
  5. DURVALUMAB. [Suspect]
     Active Substance: DURVALUMAB
     Indication: BLADDER TRANSITIONAL CELL CARCINOMA
     Dosage: 1500 MG EVERY FOUR WEEKS
     Route: 042
     Dates: start: 20171214, end: 20171214
  6. DURVALUMAB. [Suspect]
     Active Substance: DURVALUMAB
     Indication: BLADDER TRANSITIONAL CELL CARCINOMA
     Dosage: 1500 MG EVERY FOUR WEEKS
     Route: 042
     Dates: start: 20180111, end: 20180111
  7. DURVALUMAB. [Suspect]
     Active Substance: DURVALUMAB
     Indication: BLADDER TRANSITIONAL CELL CARCINOMA
     Dosage: 1500 MG EVERY FOUR WEEKS
     Route: 042
     Dates: start: 20170112, end: 20170112
  8. STUDY PROCEDURE [Suspect]
     Active Substance: INVESTIGATIONAL PRODUCT
     Indication: BLADDER TRANSITIONAL CELL CARCINOMA
     Route: 065
  9. TREMELIMUMAB. [Suspect]
     Active Substance: TREMELIMUMAB
     Indication: BLADDER TRANSITIONAL CELL CARCINOMA
     Dosage: 75 MG EVERY FOUR WEEKS
     Route: 042
     Dates: start: 20170209, end: 20170209
  10. METFORMIN [Concomitant]
     Active Substance: METFORMIN HYDROCHLORIDE
     Indication: DIABETES MELLITUS
     Route: 048
     Dates: start: 20060305
  11. DEXAMETHASONE. [Concomitant]
     Active Substance: DEXAMETHASONE
     Indication: HEPATITIS TOXIC
     Route: 048
     Dates: start: 20171024, end: 20171122
  12. DURVALUMAB. [Suspect]
     Active Substance: DURVALUMAB
     Indication: BLADDER TRANSITIONAL CELL CARCINOMA
     Dosage: 1500 MG EVERY FOUR WEEKS
     Route: 042
     Dates: start: 20170406, end: 20170406
  13. DURVALUMAB. [Suspect]
     Active Substance: DURVALUMAB
     Indication: BLADDER TRANSITIONAL CELL CARCINOMA
     Dosage: 1500 MG EVERY FOUR WEEKS
     Route: 042
     Dates: start: 20170504, end: 20170504
  14. DURVALUMAB. [Suspect]
     Active Substance: DURVALUMAB
     Indication: BLADDER TRANSITIONAL CELL CARCINOMA
     Dosage: 1500 MG EVERY FOUR WEEKS
     Route: 042
     Dates: start: 20170629, end: 20170629
  15. DURVALUMAB. [Suspect]
     Active Substance: DURVALUMAB
     Indication: BLADDER TRANSITIONAL CELL CARCINOMA
     Dosage: 1500 MG EVERY FOUR WEEKS
     Route: 042
     Dates: start: 20180208
  16. DURVALUMAB. [Suspect]
     Active Substance: DURVALUMAB
     Indication: BLADDER TRANSITIONAL CELL CARCINOMA
     Dosage: 1500 MG EVERY FOUR WEEKS
     Route: 042
     Dates: start: 20161215, end: 20161215
  17. TREMELIMUMAB. [Suspect]
     Active Substance: TREMELIMUMAB
     Indication: BLADDER TRANSITIONAL CELL CARCINOMA
     Dosage: 75 MG EVERY FOUR WEEKS
     Route: 042
     Dates: start: 20161117, end: 20161117
  18. CANEPHRON [Concomitant]
     Active Substance: HERBALS
     Indication: PYELONEPHRITIS CHRONIC
     Route: 048
  19. TREMELIMUMAB. [Suspect]
     Active Substance: TREMELIMUMAB
     Indication: BLADDER TRANSITIONAL CELL CARCINOMA
     Dosage: 75 MG EVERY FOUR WEEKS
     Route: 042
     Dates: start: 20161215, end: 20161215
  20. DURVALUMAB. [Suspect]
     Active Substance: DURVALUMAB
     Indication: BLADDER TRANSITIONAL CELL CARCINOMA
     Dosage: 1500 MG EVERY FOUR WEEKS
     Route: 042
     Dates: start: 20170209, end: 20170209
  21. DEXAMETHASONE. [Concomitant]
     Active Substance: DEXAMETHASONE
     Indication: HEPATITIS TOXIC
     Route: 048
     Dates: start: 20171005, end: 20171023
  22. ADEMETIONINE [Concomitant]
     Active Substance: ADEMETIONINE
     Indication: HEPATITIS TOXIC
     Route: 048
     Dates: start: 20170825
  23. DURVALUMAB. [Suspect]
     Active Substance: DURVALUMAB
     Indication: BLADDER TRANSITIONAL CELL CARCINOMA
     Dosage: 1500 MG EVERY FOUR WEEKS
     Route: 042
     Dates: start: 20170727, end: 20170727
  24. DURVALUMAB. [Suspect]
     Active Substance: DURVALUMAB
     Indication: BLADDER TRANSITIONAL CELL CARCINOMA
     Dosage: 1500 MG EVERY FOUR WEEKS
     Route: 042
     Dates: start: 20170824, end: 20170824
  25. TREMELIMUMAB. [Suspect]
     Active Substance: TREMELIMUMAB
     Indication: BLADDER TRANSITIONAL CELL CARCINOMA
     Dosage: 75 MG EVERY FOUR WEEKS
     Route: 042
     Dates: start: 20170112, end: 20170112

REACTIONS (1)
  - Diabetes mellitus [Recovered/Resolved]

NARRATIVE: CASE EVENT DATE: 20171108
